FAERS Safety Report 7843547-8 (Version None)
Quarter: 2011Q4

REPORT INFORMATION
  Report Type: 
  Country: None (occurrence: None)
  Receive Date: 20111018
  Receipt Date: 20111010
  Transmission Date: 20120403
  Serious: No
  Sender: FDA-Public Use
  Company Number: WAES 1105USA03505

PATIENT
  Age: 75 Year
  Sex: Male

DRUGS (1)
  1. JANUVIA [Suspect]
     Indication: TYPE 2 DIABETES MELLITUS
     Dosage: 100 MG/DAILY, PO
     Route: 048
     Dates: start: 20100120, end: 20110607

REACTIONS (6)
  - HYPOGLYCAEMIA [None]
  - CHANGE OF BOWEL HABIT [None]
  - MELAENA [None]
  - DIARRHOEA [None]
  - RECTAL HAEMORRHAGE [None]
  - WEIGHT DECREASED [None]
